FAERS Safety Report 6200775-5 (Version None)
Quarter: 2009Q2

REPORT INFORMATION
  Report Type: 
  Country: None (occurrence: None)
  Receive Date: 20090522
  Receipt Date: 20080815
  Transmission Date: 20091009
  Serious: Yes (Hospitalization, Other)
  Sender: FDA-Public Use
  Company Number: US-ALEXION-A200800195

PATIENT
  Sex: Female

DRUGS (32)
  1. SOLIRIS [Suspect]
     Indication: PAROXYSMAL NOCTURNAL HAEMOGLOBINURIA
     Dosage: 600 MG, SINGLE
     Route: 042
     Dates: start: 20071207, end: 20071207
  2. SOLIRIS [Suspect]
     Dosage: 600 MG, SINGLE
     Route: 042
     Dates: start: 20071214, end: 20071214
  3. SOLIRIS [Suspect]
     Dosage: 600 MG, SINGLE
     Route: 042
     Dates: start: 20071221, end: 20071221
  4. SOLIRIS [Suspect]
     Dosage: 600 MG, SINGLE
     Route: 042
     Dates: start: 20071228, end: 20071228
  5. SOLIRIS [Suspect]
     Dosage: 900 MG, SINGLE
     Route: 042
     Dates: start: 20080104, end: 20080104
  6. SOLIRIS [Suspect]
     Dosage: 900 MG, SINGLE
     Route: 042
     Dates: start: 20080118, end: 20080118
  7. SOLIRIS [Suspect]
     Dosage: 900 MG, SINGLE
     Route: 042
     Dates: start: 20080131, end: 20080131
  8. SOLIRIS [Suspect]
     Dosage: 900 MG, SINGLE
     Route: 042
     Dates: start: 20080214, end: 20080214
  9. SOLIRIS [Suspect]
     Dosage: 900 MG, SINGLE
     Route: 042
     Dates: start: 20080228, end: 20080228
  10. SOLIRIS [Suspect]
     Dosage: 900 MG, SINGLE
     Route: 042
     Dates: start: 20080314, end: 20080314
  11. SOLIRIS [Suspect]
     Dosage: 900 MG, SINGLE
     Route: 042
     Dates: start: 20080328, end: 20080328
  12. SOLIRIS [Suspect]
     Dosage: 900 MG, SINGLE
     Route: 042
     Dates: start: 20080424, end: 20080424
  13. SOLIRIS [Suspect]
     Dosage: 900 MG, SINGLE
     Route: 042
     Dates: start: 20080508, end: 20080508
  14. SOLIRIS [Suspect]
     Dosage: 900 MG, SINGLE
     Route: 042
     Dates: start: 20080527, end: 20080527
  15. SOLIRIS [Suspect]
     Dosage: 900 MG, SINGLE
     Route: 042
     Dates: start: 20080611, end: 20080611
  16. SOLIRIS [Suspect]
     Dosage: 900 MG, SINGLE
     Route: 042
     Dates: start: 20080625, end: 20080625
  17. SOLIRIS [Suspect]
     Dosage: 900 MG, SINGLE
     Route: 042
     Dates: start: 20080709, end: 20080709
  18. SOLIRIS [Suspect]
     Dosage: 900 MG, SINGLE
     Route: 042
     Dates: start: 20080731, end: 20080731
  19. ARICEPT [Concomitant]
     Indication: DEMENTIA
     Dosage: 100 MG, HS
     Route: 048
     Dates: start: 20080219
  20. EXJADE [Concomitant]
     Dosage: 500 MG, QD
     Route: 048
  21. TYLENOL (CAPLET) [Concomitant]
     Dosage: 650 UNK, PRN
     Route: 048
  22. LIDODERM [Concomitant]
     Route: 062
  23. TRAZODONE HCL [Concomitant]
     Dosage: 25 MG, QD
     Route: 048
  24. VITAMIN B12                        /00056201/ [Concomitant]
     Indication: VITAMIN SUPPLEMENTATION
     Dosage: UNK MG, QMONTH
     Route: 030
  25. ATENOLOL [Concomitant]
     Route: 048
  26. CALCIUM [Concomitant]
     Indication: MINERAL SUPPLEMENTATION
     Dosage: UNK, QD
     Route: 048
  27. LEVOTHYROXINE SODIUM [Concomitant]
     Indication: HYPOTHYROIDISM
     Dosage: .1 UNK, QD
     Route: 048
  28. HYDROCHLOROTHIAZIDE [Concomitant]
     Dosage: 25 MG, QD
     Route: 048
  29. EYE DROPS NOS [Concomitant]
     Route: 047
  30. FOSAMAX [Concomitant]
     Indication: OSTEOPOROSIS
     Dosage: 70 - 90 MG, WEEKLY
     Route: 048
  31. VITAMIN C                          /00008001/ [Concomitant]
     Indication: VITAMIN SUPPLEMENTATION
     Route: 048
  32. VITAMIN E                          /00110501/ [Concomitant]
     Indication: VITAMIN SUPPLEMENTATION
     Dosage: UNK, UNK
     Route: 048

REACTIONS (2)
  - BACK PAIN [None]
  - PATHOLOGICAL FRACTURE [None]
